FAERS Safety Report 5686839-3 (Version None)
Quarter: 2008Q1

REPORT INFORMATION
  Report Type: 
  Country: None (occurrence: None)
  Receive Date: 20080328
  Receipt Date: 20070515
  Transmission Date: 20080703
  Serious: No
  Sender: FDA-Public Use
  Company Number: US-BAYER-US-2007-017575

PATIENT
  Age: 41 Year
  Sex: Female

DRUGS (4)
  1. MIRENA [Suspect]
     Indication: CONTRACEPTION
     Route: 015
     Dates: start: 20070301
  2. AMILORIDE HYDROCHLORIDE [Suspect]
     Indication: FLUID RETENTION
  3. UNITHROID [Concomitant]
     Dosage: UNIT DOSE: 125 ?G
  4. UNITHROID [Concomitant]
     Dosage: UNIT DOSE: 75 ?G

REACTIONS (3)
  - METRORRHAGIA [None]
  - NAUSEA [None]
  - NIGHT SWEATS [None]
